FAERS Safety Report 9033091 (Version 1)
Quarter: 2013Q1

REPORT INFORMATION
  Report Type: Spontaneous
  Country: US (occurrence: US)
  Receive Date: 20130128
  Receipt Date: 20130128
  Transmission Date: 20140127
  Serious: Yes (Other)
  Sender: FDA-Public Use
  Company Number: US-BAYER-2013-005453

PATIENT
  Sex: Female
  Weight: 86 kg

DRUGS (14)
  1. BAYER GENUINE ASPIRIN ORIGINAL STRENGTH [Suspect]
     Indication: CARDIAC DISORDER
     Dosage: UNK UNK, QD
  2. LYRICA [Suspect]
     Indication: NEURALGIA
     Dosage: 25 MG, TID
     Route: 048
  3. LYRICA [Suspect]
     Indication: NEURALGIA
     Dosage: UNK
     Dates: end: 201204
  4. LYRICA [Suspect]
     Indication: NEURALGIA
     Dosage: 3 DF, BID
     Route: 048
  5. CELEBREX [Suspect]
     Indication: ARTHRITIS
  6. ATENOLOL [Concomitant]
     Indication: HYPERTENSION
     Dosage: 80 MG, QD
     Route: 048
  7. ISOSORBIDE [Concomitant]
     Indication: HYPERTENSION
     Dosage: 50 MG, QD
     Route: 048
  8. NORVASC [Concomitant]
     Indication: CARDIAC DISORDER
     Dosage: 10 MG, QD
     Route: 048
  9. DICYCLOMINE [Concomitant]
     Indication: GASTRIC DISORDER
     Dosage: 10 MG, BID
     Route: 048
  10. NITROGLYCERINE [Concomitant]
     Dosage: UNK
  11. NEXIUM [Concomitant]
     Indication: GASTRIC DISORDER
     Dosage: UNK
  12. SIMVASTATIN [Concomitant]
     Indication: BLOOD CHOLESTEROL ABNORMAL
     Dosage: 20 MG, QD
     Route: 048
  13. TRIMETHADIONE [Concomitant]
     Indication: CARDIAC DISORDER
     Dosage: UNK UNK, QOD
  14. POTASSIUM [Concomitant]
     Indication: CARDIAC DISORDER
     Dosage: UNK

REACTIONS (5)
  - Gastric ulcer [Unknown]
  - Spinal column stenosis [Unknown]
  - Back pain [Unknown]
  - Radiculopathy [Unknown]
  - Abdominal discomfort [Unknown]
